FAERS Safety Report 18007393 (Version 2)
Quarter: 2020Q3

REPORT INFORMATION
  Report Type: Spontaneous
  Country: CA (occurrence: CA)
  Receive Date: 20200710
  Receipt Date: 20200710
  Transmission Date: 20201103
  Serious: Yes (Hospitalization, Other)
  Sender: FDA-Public Use
  Company Number: CA-PFIZER INC-2020264538

PATIENT
  Age: 67 Year
  Sex: Male

DRUGS (11)
  1. SODIUM LACTATE. [Suspect]
     Active Substance: SODIUM LACTATE
     Indication: RENAL FAILURE
     Dosage: UNK
     Route: 033
  2. MAGNESIUM CHLORIDE ANHYDROUS [Suspect]
     Active Substance: MAGNESIUM CHLORIDE ANHYDROUS
     Indication: PERITONEAL DIALYSIS
     Dosage: UNK
     Route: 065
  3. CALCIUM CHLORIDE. [Suspect]
     Active Substance: CALCIUM CHLORIDE
     Indication: PERITONEAL DIALYSIS
     Dosage: UNK
     Route: 065
  4. GLUCOSE [Suspect]
     Active Substance: DEXTROSE
     Indication: RENAL FAILURE
     Dosage: UNK
     Route: 033
  5. BACTERIOSTATIC SODIUM CHLORIDE [Suspect]
     Active Substance: SODIUM CHLORIDE
     Indication: RENAL FAILURE
     Dosage: UNK
     Route: 033
  6. GLUCOSE [Suspect]
     Active Substance: DEXTROSE
     Indication: PERITONEAL DIALYSIS
     Dosage: UNK
     Route: 065
  7. CALCIUM CARBONATE. [Suspect]
     Active Substance: CALCIUM CARBONATE
     Indication: PROPHYLAXIS
     Route: 048
  8. SODIUM LACTATE. [Suspect]
     Active Substance: SODIUM LACTATE
     Indication: PERITONEAL DIALYSIS
     Dosage: UNK
     Route: 065
  9. CALCIUM CHLORIDE. [Suspect]
     Active Substance: CALCIUM CHLORIDE
     Indication: RENAL FAILURE
     Dosage: UNK
     Route: 033
  10. BACTERIOSTATIC SODIUM CHLORIDE [Suspect]
     Active Substance: SODIUM CHLORIDE
     Indication: PERITONEAL DIALYSIS
     Dosage: UNK
     Route: 065
  11. MAGNESIUM CHLORIDE ANHYDROUS [Suspect]
     Active Substance: MAGNESIUM CHLORIDE ANHYDROUS
     Indication: RENAL FAILURE
     Dosage: UNK
     Route: 033

REACTIONS (3)
  - Abnormal behaviour [Unknown]
  - Blood calcium increased [Unknown]
  - Incoherent [Unknown]
